FAERS Safety Report 13194513 (Version 1)
Quarter: 2017Q1

REPORT INFORMATION
  Report Type: Spontaneous
  Country: US (occurrence: US)
  Receive Date: 20170207
  Receipt Date: 20170207
  Transmission Date: 20170428
  Serious: No
  Sender: FDA-Public Use
  Company Number: US-JAZZ-2016-US-004507

PATIENT
  Sex: Male

DRUGS (6)
  1. METHADONE HCL [Concomitant]
     Active Substance: METHADONE HYDROCHLORIDE
  2. ZANAFLEX [Concomitant]
     Active Substance: TIZANIDINE HYDROCHLORIDE
  3. OPANA [Concomitant]
     Active Substance: OXYMORPHONE HYDROCHLORIDE
  4. PRIALT [Suspect]
     Active Substance: ZICONOTIDE ACETATE
     Indication: POST LAMINECTOMY SYNDROME
     Dosage: 0.05 ?G, QH
     Route: 037
  5. VISTARIL [Concomitant]
     Active Substance: HYDROXYZINE PAMOATE
  6. PRIALT [Suspect]
     Active Substance: ZICONOTIDE ACETATE
     Dosage: 0.083 ?G, QH
     Route: 037

REACTIONS (6)
  - Delusion [Unknown]
  - Personality change [Unknown]
  - Hallucination [Unknown]
  - Dry mouth [Unknown]
  - Vision blurred [Unknown]
  - Sedation [Unknown]
